FAERS Safety Report 13959550 (Version 3)
Quarter: 2018Q2

REPORT INFORMATION
  Report Type: Spontaneous
  Country: US (occurrence: US)
  Receive Date: 20170911
  Receipt Date: 20180427
  Transmission Date: 20180711
  Serious: Yes (Hospitalization, Other)
  Sender: FDA-Public Use
  Company Number: US-DSJP-DSU-2017-135984

PATIENT

DRUGS (1)
  1. BENICAR HCT [Suspect]
     Active Substance: HYDROCHLOROTHIAZIDE\OLMESARTAN MEDOXOMIL
     Indication: HYPERTENSION
     Dosage: 40/25 MG QD
     Route: 048
     Dates: start: 2008, end: 20170618

REACTIONS (7)
  - Diarrhoea [Recovered/Resolved]
  - Weight decreased [Recovered/Resolved]
  - Diverticulum intestinal [Unknown]
  - Diverticulitis [Unknown]
  - Cholelithiasis [Recovered/Resolved]
  - Nausea [Recovered/Resolved]
  - Large intestine polyp [Unknown]

NARRATIVE: CASE EVENT DATE: 20080415
